FAERS Safety Report 4676489-X (Version None)
Quarter: 2005Q2

REPORT INFORMATION
  Report Type: 
  Country: None (occurrence: None)
  Receive Date: 20050527
  Receipt Date: 20050427
  Transmission Date: 20051028
  Serious: Yes (Other)
  Sender: FDA-Public Use
  Company Number: DE-MERCK-0504DEU00230

PATIENT
  Age: 34 Year
  Sex: Female

DRUGS (9)
  1. VYTORIN [Suspect]
     Route: 048
  2. CORTISONE [Concomitant]
     Indication: RENAL TRANSPLANT
     Route: 048
  3. CANDESARTAN CILEXETIL [Concomitant]
     Indication: HYPERTENSION
     Route: 048
  4. TORSEMIDE [Concomitant]
     Route: 065
  5. FERROUS GLYCINE SULFATE [Concomitant]
     Route: 065
  6. INSULIN HUMAN, ISOPHANE [Concomitant]
     Indication: DIABETES MELLITUS
     Route: 065
  7. INSULIN, NEUTRAL [Concomitant]
     Indication: DIABETES MELLITUS
     Route: 065
  8. NEBIVOLOL [Concomitant]
     Indication: DIABETES MELLITUS
     Route: 065
  9. SIROLIMUS [Suspect]
     Route: 065

REACTIONS (1)
  - GRAND MAL CONVULSION [None]
